FAERS Safety Report 13633341 (Version 1)
Quarter: 2017Q2

REPORT INFORMATION
  Report Type: Spontaneous
  Country: US (occurrence: US)
  Receive Date: 20170531
  Receipt Date: 20170531
  Transmission Date: 20170830
  Serious: No
  Sender: FDA-Public Use
  Company Number: US-ASTELLAS-1532083

PATIENT
  Sex: Male

DRUGS (9)
  1. TARCEVA [Suspect]
     Active Substance: ERLOTINIB HYDROCHLORIDE
     Indication: NON-SMALL CELL LUNG CANCER
     Route: 065
  2. DEXAMETHASONE. [Concomitant]
     Active Substance: DEXAMETHASONE
  3. LOMOTIL (UNITED STATES) [Concomitant]
  4. COMPAZINE [Concomitant]
     Active Substance: PROCHLORPERAZINE MALEATE
  5. ATENOLOL. [Concomitant]
     Active Substance: ATENOLOL
  6. MEVACOR [Concomitant]
     Active Substance: LOVASTATIN
  7. LORAZEPAM. [Concomitant]
     Active Substance: LORAZEPAM
  8. CLINDAGEL [Concomitant]
     Active Substance: CLINDAMYCIN PHOSPHATE
  9. HYZAAR [Concomitant]
     Active Substance: HYDROCHLOROTHIAZIDE\LOSARTAN POTASSIUM

REACTIONS (1)
  - Diarrhoea [Not Recovered/Not Resolved]
